FAERS Safety Report 9793111 (Version 1)
Quarter: 2014Q1

REPORT INFORMATION
  Report Type: Spontaneous
  Country: US (occurrence: US)
  Receive Date: 20140102
  Receipt Date: 20140102
  Transmission Date: 20141002
  Serious: Yes (Death, Other)
  Sender: FDA-Public Use
  Company Number: US-GILEAD-2013-0091004

PATIENT
  Age: 48 Year
  Sex: Male

DRUGS (13)
  1. LETAIRIS [Suspect]
     Indication: PULMONARY HYPERTENSION
     Dosage: 10 MG, QD
     Route: 048
     Dates: start: 20130802, end: 20131209
  2. PREDNISONE [Concomitant]
  3. POTASSIUM [Concomitant]
  4. MULTIVITAMINS [Concomitant]
  5. IRON [Concomitant]
  6. ASA [Concomitant]
  7. XARELTO [Concomitant]
  8. SILDENAFIL [Concomitant]
  9. HYDRALAZINE [Concomitant]
  10. ENALAPRIL [Concomitant]
  11. METOLAZONE [Concomitant]
  12. FUROSEMIDE [Concomitant]
  13. VERAPAMIL [Concomitant]

REACTIONS (1)
  - Death [Fatal]
